FAERS Safety Report 8486955-7 (Version None)
Quarter: 2012Q3

REPORT INFORMATION
  Report Type: 
  Country: None (occurrence: None)
  Receive Date: 20120704
  Receipt Date: 20120629
  Transmission Date: 20120928
  Serious: Yes (Other)
  Sender: FDA-Public Use
  Company Number: US-AMGEN-USASP2012030822

PATIENT
  Age: 53 Year
  Sex: Male
  Weight: 78.005 kg

DRUGS (27)
  1. NPLATE [Suspect]
     Dosage: 500 MUG, UNK
     Route: 058
     Dates: start: 20100204, end: 20100204
  2. NPLATE [Suspect]
     Dosage: 510 MUG, UNK
     Route: 058
     Dates: start: 20100408, end: 20100408
  3. NPLATE [Suspect]
     Dosage: 672 MUG, UNK
     Route: 058
     Dates: start: 20100506, end: 20100506
  4. NPLATE [Suspect]
     Dosage: 850 MUG, QWK
     Dates: start: 20101209, end: 20110804
  5. NPLATE [Suspect]
     Dosage: 160 MUG, UNK
     Route: 058
     Dates: start: 20100107, end: 20100107
  6. NIACIN [Concomitant]
     Indication: BLOOD CHOLESTEROL INCREASED
     Dosage: UNK UNK, QD
     Route: 048
  7. TYLENOL (CAPLET) [Concomitant]
     Dosage: 1000 MG, UNK
     Route: 048
     Dates: start: 20110811, end: 20110901
  8. NPLATE [Suspect]
     Dosage: 670 MUG, QWK
     Route: 058
     Dates: start: 20101021, end: 20101029
  9. NPLATE [Suspect]
     Dosage: 560 MUG, UNK
     Route: 058
     Dates: start: 20100211, end: 20100211
  10. NPLATE [Suspect]
     Dosage: 510 MUG, UNK
     Dates: start: 20100408, end: 20100408
  11. NPLATE [Suspect]
     Dosage: 672 MUG, QWK
     Route: 058
     Dates: start: 20100318, end: 20100401
  12. NPLATE [Suspect]
     Dosage: 250 MUG, UNK
     Route: 058
     Dates: start: 20100114, end: 20100114
  13. NPLATE [Suspect]
     Dosage: 320 MUG, QWK
     Route: 058
     Dates: start: 20100121, end: 20100121
  14. NPLATE [Suspect]
     Dosage: 400 MUG, UNK
     Route: 058
     Dates: start: 20100128, end: 20100128
  15. NPLATE [Suspect]
     Dosage: 672 MUG, QWK
     Route: 058
     Dates: start: 20100225, end: 20100304
  16. NPLATE [Suspect]
     Dosage: 560 MUG, QWK
     Dates: start: 20100415, end: 20100429
  17. RITUXAN [Concomitant]
     Dosage: 800 MG, QWK
     Dates: start: 20110811, end: 20110901
  18. NPLATE [Suspect]
     Dosage: 9 MUG/KG, UNK
     Route: 058
     Dates: start: 20100513
  19. NPLATE [Suspect]
     Dosage: 750 MUG, QWK
     Route: 058
     Dates: start: 20100520, end: 20101014
  20. BENADRYL [Concomitant]
     Dosage: 25 MG, UNK
     Dates: start: 20110811, end: 20110901
  21. DANAZOL [Concomitant]
     Dosage: 400 MG, UNK
     Dates: start: 20120308
  22. NPLATE [Suspect]
     Indication: IDIOPATHIC THROMBOCYTOPENIC PURPURA
     Dosage: 80 MUG, QWK
     Route: 058
     Dates: start: 20091231, end: 20091231
  23. NPLATE [Suspect]
     Dosage: 672 MUG, UNK
     Route: 058
     Dates: start: 20100506, end: 20100506
  24. NPLATE [Suspect]
     Dosage: 560 MUG, QWK
     Route: 058
     Dates: start: 20100415, end: 20100429
  25. DANAZOL [Concomitant]
     Dosage: 200 MG, BID
     Dates: start: 20111102, end: 20120223
  26. NPLATE [Suspect]
     Dosage: 750 MUG, QWK
     Route: 058
     Dates: start: 20101104, end: 20101202
  27. ZOCOR [Concomitant]
     Indication: BLOOD CHOLESTEROL INCREASED
     Dosage: UNK UNK, QD
     Route: 048

REACTIONS (2)
  - THERAPEUTIC RESPONSE DECREASED [None]
  - THERAPEUTIC RESPONSE UNEXPECTED [None]
